FAERS Safety Report 9197828 (Version 3)
Quarter: 2013Q4

REPORT INFORMATION
  Report Type: Report from Study
  Country: PL (occurrence: PL)
  Receive Date: 20130328
  Receipt Date: 20131029
  Transmission Date: 20140711
  Serious: Yes (Hospitalization, Other)
  Sender: FDA-Public Use
  Company Number: PL-ACTELION-A-CH2013-81171

PATIENT
  Age: 3 Year
  Sex: Female
  Weight: 12 kg

DRUGS (8)
  1. TRACLEER [Suspect]
     Indication: PULMONARY ARTERIAL HYPERTENSION
     Dosage: 32.5 MG, BID
     Route: 048
     Dates: start: 20110909
  2. TRACLEER [Suspect]
     Dosage: 7 MG, BID
     Route: 048
     Dates: start: 20110805, end: 20110908
  3. SILDENAFIL [Concomitant]
     Dosage: UNK
     Dates: start: 201111
  4. DIGOXIN [Concomitant]
     Dosage: UNK
     Dates: start: 20121004
  5. HYDROCHLOROTHIAZIDE [Concomitant]
     Dosage: UNK
     Dates: start: 201201, end: 201212
  6. FUROSEMIDE [Concomitant]
     Dosage: UNK
     Dates: start: 201201
  7. SPIRONOLACTONE [Concomitant]
     Dosage: UNK
     Dates: start: 201201
  8. ACENOCOUMAROL [Concomitant]
     Dosage: UNK
     Dates: start: 201201

REACTIONS (14)
  - Pulmonary arterial hypertension [Recovered/Resolved]
  - Disease progression [Recovered/Resolved]
  - Aortic anastomosis [Unknown]
  - Viral upper respiratory tract infection [Unknown]
  - Cardiac failure [Recovered/Resolved]
  - N-terminal prohormone brain natriuretic peptide increased [Recovered/Resolved]
  - Decreased appetite [Unknown]
  - Abdominal pain upper [Unknown]
  - Irritability [Unknown]
  - Dyspnoea [Recovered/Resolved]
  - Tachypnoea [Recovered/Resolved]
  - Oxygen saturation decreased [Recovered/Resolved]
  - Chest pain [Recovered/Resolved]
  - Hepatomegaly [Recovered/Resolved]
